FAERS Safety Report 7579948-5 (Version None)
Quarter: 2011Q2

REPORT INFORMATION
  Report Type: 
  Country: None (occurrence: None)
  Receive Date: 20110629
  Receipt Date: 20110617
  Transmission Date: 20111010
  Serious: Yes (Hospitalization)
  Sender: FDA-Public Use
  Company Number: ES-SANOFI-AVENTIS-2011SA006969

PATIENT
  Age: 73 Year
  Sex: Male
  Weight: 65 kg

DRUGS (11)
  1. MULTAQ [Suspect]
     Indication: ATRIAL FIBRILLATION
     Route: 048
     Dates: start: 20101201, end: 20110102
  2. ALL OTHER THERAPEUTIC PRODUCTS [Concomitant]
  3. CANDESARTAN CILEXETIL [Concomitant]
  4. FERROUS SULFATE TAB [Concomitant]
  5. ASPIRIN [Concomitant]
  6. PANTOPRAZOLE [Concomitant]
  7. ANTITHROMBOTIC AGENTS [Concomitant]
     Route: 048
  8. ACETYLCYSTEINE [Concomitant]
  9. EPLERENONE [Concomitant]
  10. VITAMIN B COMPLEX CAP [Concomitant]
  11. MEGESTROL ACETATE [Concomitant]

REACTIONS (7)
  - DISCOMFORT [None]
  - ORGANISING PNEUMONIA [None]
  - COUGH [None]
  - ASTHENIA [None]
  - ACUTE RESPIRATORY FAILURE [None]
  - PYREXIA [None]
  - DYSPNOEA [None]
